FAERS Safety Report 8026020-6 (Version None)
Quarter: 2012Q1

REPORT INFORMATION
  Report Type: 
  Country: None (occurrence: None)
  Receive Date: 20120105
  Receipt Date: 20111011
  Transmission Date: 20120608
  Serious: No
  Sender: FDA-Public Use
  Company Number: US-ABBOTT-11P-163-0863012-00

PATIENT
  Sex: Female
  Weight: 70.37 kg

DRUGS (4)
  1. LISINOPRIL [Concomitant]
     Indication: HYPERTENSION
     Dosage: 10 MG
     Dates: start: 20010101
  2. SYNTHROID [Suspect]
     Dosage: 75 MCG
     Dates: end: 20110901
  3. CYTOMEL [Concomitant]
     Indication: HYPOTHYROIDISM
  4. SYNTHROID [Suspect]
     Indication: HYPOTHYROIDISM
     Dates: start: 20110901

REACTIONS (3)
  - WEIGHT INCREASED [None]
  - ALOPECIA [None]
  - NERVE INJURY [None]
